FAERS Safety Report 10413950 (Version 2)
Quarter: 2014Q3

REPORT INFORMATION
  Report Type: Spontaneous
  Country: US (occurrence: US)
  Receive Date: 20140827
  Receipt Date: 20140827
  Transmission Date: 20150326
  Serious: No
  Sender: FDA-Public Use
  Company Number: US-GALDERMA-US13003621

PATIENT
  Age: 59 Year
  Sex: Female

DRUGS (1)
  1. PLIAGLIS [Suspect]
     Active Substance: LIDOCAINE\TETRACAINE
     Indication: LASER THERAPY
     Route: 061
     Dates: start: 20131113, end: 20131113

REACTIONS (1)
  - Erythema [Recovered/Resolved]

NARRATIVE: CASE EVENT DATE: 20131113
